FAERS Safety Report 7385038-7 (Version None)
Quarter: 2011Q1

REPORT INFORMATION
  Report Type: 
  Country: None (occurrence: None)
  Receive Date: 20110330
  Receipt Date: 20110329
  Transmission Date: 20110831
  Serious: Yes (Other)
  Sender: FDA-Public Use
  Company Number: US-AMGEN-USASP2011016433

PATIENT
  Sex: Male

DRUGS (2)
  1. NPLATE [Suspect]
     Indication: IDIOPATHIC THROMBOCYTOPENIC PURPURA
     Dosage: 308 A?G, UNK
     Dates: start: 20090326, end: 20110311
  2. CORTICOSTEROIDS [Concomitant]

REACTIONS (1)
  - CHRONIC MYELOMONOCYTIC LEUKAEMIA [None]
